FAERS Safety Report 9156793 (Version 1)
Quarter: 2013Q1

REPORT INFORMATION
  Report Type: Spontaneous
  Country: US (occurrence: None)
  Receive Date: 20130215
  Receipt Date: 20130215
  Transmission Date: 20140127
  Serious: Yes (Other)
  Sender: FDA-Public Use
  Company Number: AUR-APL-2013-01396

PATIENT
  Age: 78 Year
  Sex: Female

DRUGS (4)
  1. QUETIAPINE (QUETIAPINE) (QUETIAPINE) [Suspect]
     Indication: PSYCHOTIC DISORDER
  2. RISPERIDONE (RISPERIDONE) [Suspect]
     Indication: PSYCHOTIC DISORDER
  3. RISPERIDONE (RISPERIDONE) [Suspect]
  4. ARIPIPRAZOLE (ARIPIPRAZOLE) [Suspect]
     Indication: PSYCHOTIC DISORDER

REACTIONS (4)
  - Bradykinesia [None]
  - Tremor [None]
  - Paranoia [None]
  - Delusion [None]
